FAERS Safety Report 7315702-7 (Version None)
Quarter: 2011Q1

REPORT INFORMATION
  Report Type: 
  Country: None (occurrence: None)
  Receive Date: 20110225
  Receipt Date: 20100712
  Transmission Date: 20110831
  Serious: Yes (Hospitalization)
  Sender: FDA-Public Use
  Company Number: US-BAYER-200937774NA

PATIENT
  Sex: Female
  Weight: 63.492 kg

DRUGS (21)
  1. YAZ [Suspect]
     Indication: MENORRHAGIA
  2. ATROPINE [Concomitant]
     Indication: IRRITABLE BOWEL SYNDROME
     Dosage: UNK
     Dates: start: 20060601, end: 20060901
  3. GABAPENTIN [Concomitant]
     Indication: ANTICONVULSANT DRUG LEVEL THERAPEUTIC
     Dosage: UNK
     Dates: start: 20050201, end: 20070401
  4. ZOLOFT [Concomitant]
  5. DICYCLOMINE [Concomitant]
     Indication: IRRITABLE BOWEL SYNDROME
     Dosage: UNK
     Dates: start: 20060701, end: 20060701
  6. ALBUTEROL INHALER [Concomitant]
     Dosage: UNK
     Dates: start: 20060501
  7. RELAFEN [Concomitant]
     Indication: OSTEOARTHRITIS
     Dosage: UNK
     Dates: start: 20050401
  8. LORAZEPAM [Concomitant]
     Indication: ANXIETY
     Dosage: UNK
     Dates: start: 20040101, end: 20070201
  9. ZANAFLEX [Concomitant]
     Dosage: UNK
     Dates: start: 20061101
  10. DIPHENOXYLATE [Concomitant]
     Indication: IRRITABLE BOWEL SYNDROME
     Dosage: UNK
     Dates: start: 20060601, end: 20060901
  11. LOESTRIN 1.5/30 [Concomitant]
     Dosage: UNK
     Dates: start: 20061111
  12. YASMIN [Suspect]
     Indication: PRODUCT USED FOR UNKNOWN INDICATION
  13. OXYCODONE [Concomitant]
     Indication: PAIN
     Dosage: UNK
     Dates: start: 20060301, end: 20061101
  14. TIZANIDINE [Concomitant]
     Indication: MUSCLE RELAXANT THERAPY
     Dosage: UNK
     Dates: start: 20060501, end: 20061001
  15. HYDROCODONE BITARTRATE [Concomitant]
     Indication: PAIN
     Dosage: UNK
     Dates: start: 20050201, end: 20060701
  16. NEURONTIN [Concomitant]
     Dosage: UNK
     Dates: start: 20061107
  17. ZYRTEC [Concomitant]
     Dosage: UNK
     Dates: start: 20040101, end: 20070401
  18. MARIJUANA [Concomitant]
     Indication: CEREBRAL PALSY
     Dosage: UNK
     Dates: start: 20060101
  19. ZANTAC [Concomitant]
     Indication: ABDOMINAL PAIN UPPER
     Dosage: UNK
     Dates: start: 20051201
  20. LEXAPRO [Concomitant]
     Indication: DEPRESSION
     Dosage: UNK
     Dates: start: 20061001, end: 20070401
  21. UNCODEABLE ^UNCLASSIFIABLE^ [Concomitant]

REACTIONS (5)
  - PAIN [None]
  - MENTAL DISORDER [None]
  - ATELECTASIS [None]
  - PLEURAL EFFUSION [None]
  - PULMONARY EMBOLISM [None]
